FAERS Safety Report 5332335-2 (Version None)
Quarter: 2007Q2

REPORT INFORMATION
  Report Type: 
  Country: None (occurrence: None)
  Receive Date: 20070523
  Receipt Date: 20070521
  Transmission Date: 20071010
  Serious: Yes (Hospitalization, Other)
  Sender: FDA-Public Use
  Company Number: A0645110A

PATIENT
  Age: 68 Year
  Sex: Female
  Weight: 43.6 kg

DRUGS (19)
  1. FLOLAN [Suspect]
     Route: 042
     Dates: start: 20030411
  2. FUROSEMIDE [Concomitant]
     Dosage: 80MG TWICE PER DAY
     Route: 048
  3. SILDENAFIL CITRATE [Concomitant]
     Dosage: 20MG THREE TIMES PER DAY
     Route: 048
  4. NEURONTIN [Concomitant]
     Dosage: 300MG THREE TIMES PER DAY
  5. GUAIFENESIN DM [Concomitant]
     Dosage: 5ML AS REQUIRED
     Route: 048
  6. PROMETHAZINE [Concomitant]
     Dosage: 25MG AS REQUIRED
     Route: 048
  7. SPIRONOLACTONE [Concomitant]
     Dosage: 100MG IN THE MORNING
     Route: 048
  8. ASPIRIN [Concomitant]
     Dosage: 81MG IN THE MORNING
     Route: 048
  9. MYCELEX [Concomitant]
     Dosage: 10MG FIVE TIMES PER DAY
     Route: 048
  10. MULTI-VITAMIN [Concomitant]
     Dosage: 1TAB IN THE MORNING
     Route: 048
  11. COLACE [Concomitant]
     Dosage: 100MG TWICE PER DAY
     Route: 048
  12. LORTAB [Concomitant]
     Route: 048
  13. SIMETHICONE [Concomitant]
     Dosage: 80MG AS DIRECTED
     Route: 048
  14. FOLIC ACID [Concomitant]
     Dosage: 1MG PER DAY
     Route: 048
  15. SYNTHROID [Concomitant]
     Dosage: 25MCG PER DAY
     Route: 048
  16. EVISTA [Concomitant]
     Dosage: 60MG PER DAY
     Route: 048
  17. LOPID [Concomitant]
     Dosage: 600MG TWICE PER DAY
     Route: 048
  18. HYDROXYZINE HCL [Concomitant]
     Dosage: 25MG TWICE PER DAY
     Route: 048
  19. MICRO-K [Concomitant]
     Dosage: 10MEQ SIX TIMES PER DAY
     Route: 048

REACTIONS (7)
  - COUGH [None]
  - FEELING ABNORMAL [None]
  - HAEMATEMESIS [None]
  - NAUSEA [None]
  - OESOPHAGEAL RUPTURE [None]
  - RESPIRATORY TRACT INFECTION [None]
  - VOMITING [None]
